FAERS Safety Report 25479055 (Version 2)
Quarter: 2025Q3

REPORT INFORMATION
  Report Type: Report from Study
  Country: US (occurrence: US)
  Receive Date: 20250625
  Receipt Date: 20250825
  Transmission Date: 20251020
  Serious: Yes (Hospitalization, Other)
  Sender: UCB
  Company Number: US-UCBSA-2025037125

PATIENT
  Age: 43 Year
  Sex: Female

DRUGS (2)
  1. BIMEKIZUMAB [Suspect]
     Active Substance: BIMEKIZUMAB
     Indication: Psoriasis
     Dosage: 160 MILLIGRAM, EV 4 WEEKS
     Route: 058
     Dates: start: 20241210
  2. BIMEKIZUMAB [Suspect]
     Active Substance: BIMEKIZUMAB
     Indication: Psoriatic arthropathy
     Dosage: 320 MILLIGRAM, EV 4 WEEKS
     Route: 058
     Dates: end: 202506

REACTIONS (11)
  - Psoriatic arthropathy [Not Recovered/Not Resolved]
  - Ovarian cyst [Unknown]
  - Oophorectomy [Recovered/Resolved]
  - Sepsis [Recovered/Resolved]
  - Mental impairment [Unknown]
  - Psoriasis [Not Recovered/Not Resolved]
  - Candida infection [Unknown]
  - Vulvovaginal mycotic infection [Unknown]
  - Incorrect dose administered [Unknown]
  - Therapy interrupted [Unknown]
  - Insurance issue [Unknown]

NARRATIVE: CASE EVENT DATE: 20241210
